FAERS Safety Report 5771937-6 (Version None)
Quarter: 2008Q2

REPORT INFORMATION
  Report Type: 
  Country: None (occurrence: None)
  Receive Date: 20080613
  Receipt Date: 20080604
  Transmission Date: 20081010
  Serious: Yes (Hospitalization)
  Sender: FDA-Public Use
  Company Number: FR-ASTRAZENECA-2008CG00877

PATIENT
  Age: 2 Month
  Sex: Male
  Weight: 4 kg

DRUGS (3)
  1. NEXIUM [Suspect]
     Indication: GASTROOESOPHAGEAL REFLUX DISEASE
     Route: 048
     Dates: start: 20080401
  2. VITAMINE A [Concomitant]
  3. ORBENINE [Concomitant]

REACTIONS (1)
  - INTRACRANIAL PRESSURE INCREASED [None]
